FAERS Safety Report 8614914-X (Version None)
Quarter: 2012Q3

REPORT INFORMATION
  Report Type: 
  Country: None (occurrence: None)
  Receive Date: 20120823
  Receipt Date: 20120810
  Transmission Date: 20120928
  Serious: Yes (Other)
  Sender: FDA-Public Use
  Company Number: JP-VERTEX PHARMACEUTICAL INC.-2012-019676

PATIENT
  Age: 64 Year
  Sex: Male

DRUGS (15)
  1. VX-950 [Suspect]
     Dosage: UNK, QD
  2. RIBAVIRIN [Concomitant]
     Dosage: 400 MG, QD
     Dates: start: 20120731
  3. LIVACT                             /00847901/ [Concomitant]
  4. VX-950 [Suspect]
     Indication: HEPATITIS C
     Dosage: 2250 MG, QD
     Route: 048
     Dates: start: 20120508
  5. NEXIUM [Concomitant]
     Dosage: 20 MG, QD
     Dates: start: 20120508
  6. HIRUDOID                           /00723701/ [Concomitant]
     Dosage: UNK, QD
     Dates: start: 20120512, end: 20120512
  7. RIBAVIRIN [Concomitant]
     Indication: HEPATITIS C
     Dosage: 800 MG, QD
     Route: 048
     Dates: start: 20120508, end: 20120730
  8. ETHYL ICOSAPENTATE [Concomitant]
     Dosage: 3 DF, QD
  9. VOLTAREN [Concomitant]
     Dosage: 25 MG, UNK
     Dates: start: 20120508
  10. PREDNISOLONE [Concomitant]
     Dosage: UNK, QD
     Dates: start: 20120611, end: 20120611
  11. PEGINTERFERON ALFA-2B [Concomitant]
     Dosage: 1.5 A?G/KG, UNK
     Route: 058
     Dates: start: 20120508
  12. URSO                               /00465701/ [Concomitant]
     Dosage: 600 MG, QD
  13. CLOBETASOL PROPIONATE [Concomitant]
     Dosage: UNK, QD
     Dates: start: 20120621, end: 20120621
  14. BEPOTASTINE BESILATE [Concomitant]
     Dosage: 20 MG, QD
     Dates: start: 20120508
  15. PROMAC                             /00024401/ [Concomitant]
     Dosage: 225 MG, UNK

REACTIONS (2)
  - ANAEMIA [None]
  - RASH [None]
